FAERS Safety Report 4322525-X (Version None)
Quarter: 2004Q1

REPORT INFORMATION
  Report Type: 
  Country: None (occurrence: None)
  Receive Date: 20040324
  Receipt Date: 20040316
  Transmission Date: 20041129
  Serious: Yes (Hospitalization)
  Sender: FDA-Public Use
  Company Number: 200411071FR

PATIENT
  Age: 79 Year
  Sex: Male
  Weight: 50 kg

DRUGS (3)
  1. LASIX [Suspect]
     Route: 048
     Dates: start: 20031106, end: 20040103
  2. CORDARONE [Suspect]
     Route: 048
     Dates: start: 20031125, end: 20040103
  3. ALLOPURINOL [Suspect]
     Route: 048
     Dates: end: 20040103

REACTIONS (15)
  - ALANINE AMINOTRANSFERASE INCREASED [None]
  - ASPARTATE AMINOTRANSFERASE INCREASED [None]
  - CHEILITIS [None]
  - DIARRHOEA [None]
  - EOSINOPHILIA [None]
  - ERYTHEMA MULTIFORME [None]
  - FALL [None]
  - GASTROINTESTINAL DISORDER [None]
  - GLOSSITIS [None]
  - LIVER DISORDER [None]
  - MALAISE [None]
  - PYREXIA [None]
  - RENAL FAILURE [None]
  - SKIN DESQUAMATION [None]
  - WEIGHT DECREASED [None]
